FAERS Safety Report 8475635 (Version 2)
Quarter: 2012Q4

REPORT INFORMATION
  Report Type: 
  Country: US (occurrence: US)
  Receive Date: 20120326
  Receipt Date: 20121205
  Transmission Date: 20130627
  Serious: No
  Sender: FDA-Public Use
  Company Number: US-BAYER-2012-028759

PATIENT
  Sex: Female
  Weight: 73 kg

DRUGS (7)
  1. BETASERON [Suspect]
     Dosage: 0.3 mg, QOD
     Route: 058
  2. BENICAR [Concomitant]
     Dosage: 20 mg, UNK
  3. ZOCOR [Concomitant]
     Dosage: 40 mg, UNK
  4. COLAZAL [Concomitant]
     Dosage: 750 mg, UNK
  5. CALCIUM +VIT D [Concomitant]
  6. METFORMIN [Concomitant]
     Dosage: 500 mg, UNK
  7. CANASA [Concomitant]
     Dosage: 500 mg, UNK

REACTIONS (3)
  - Influenza like illness [Not Recovered/Not Resolved]
  - Injection site erythema [Not Recovered/Not Resolved]
  - Injection site bruising [Not Recovered/Not Resolved]
